FAERS Safety Report 4340731-5 (Version None)
Quarter: 2004Q2

REPORT INFORMATION
  Report Type: 
  Country: None (occurrence: None)
  Receive Date: 20040414
  Receipt Date: 20040402
  Transmission Date: 20050107
  Serious: Yes (Hospitalization)
  Sender: FDA-Public Use
  Company Number: US-JNJFOC-20040400981

PATIENT
  Age: 48 Year
  Sex: Female
  Weight: 72.5755 kg

DRUGS (8)
  1. REMICADE [Suspect]
     Indication: CROHN'S DISEASE
     Dosage: 5MG/KG INTRAVENOUS
     Route: 042
     Dates: start: 20031112
  2. PHENOBARBITAL TAB [Concomitant]
  3. ATENOLOL [Concomitant]
  4. VALIUM [Concomitant]
  5. PAXIL [Concomitant]
  6. VITAMIN B-12 (CYANCOBALAMIN) [Concomitant]
  7. 5-ASA (MESALAZINE) [Concomitant]
  8. BENADRYL [Concomitant]

REACTIONS (11)
  - ABDOMINAL PAIN UPPER [None]
  - CONSTIPATION [None]
  - DIARRHOEA [None]
  - DIZZINESS [None]
  - HEADACHE [None]
  - MENTAL STATUS CHANGES [None]
  - MUSCLE CRAMP [None]
  - NAUSEA [None]
  - SKIN ULCER [None]
  - SOMNOLENCE [None]
  - VOMITING [None]
